FAERS Safety Report 14240856 (Version 3)
Quarter: 2017Q4

REPORT INFORMATION
  Report Type: Report from Study
  Country: US (occurrence: US)
  Receive Date: 20171130
  Receipt Date: 20171218
  Transmission Date: 20180321
  Serious: Yes (Life-Threatening, Hospitalization, Other)
  Sender: FDA-Public Use
  Company Number: US-TESARO, INC-US-2017TSO03639

PATIENT

DRUGS (2)
  1. ZEJULA [Suspect]
     Active Substance: NIRAPARIB
     Indication: OVARIAN CANCER
     Dosage: 200 MG, QD
     Route: 048
     Dates: start: 20171023
  2. ZEJULA [Suspect]
     Active Substance: NIRAPARIB
     Dosage: 100 MG, QD
     Route: 048
     Dates: end: 20171113

REACTIONS (14)
  - Blood magnesium decreased [Unknown]
  - Urinary tract infection [Unknown]
  - Cardiac pacemaker insertion [Not Recovered/Not Resolved]
  - Intentional underdose [Unknown]
  - Vomiting [Unknown]
  - Hypotension [Unknown]
  - Cardiac disorder [Not Recovered/Not Resolved]
  - Platelet count decreased [Recovering/Resolving]
  - Myocardial infarction [Not Recovered/Not Resolved]
  - Dizziness [Unknown]
  - Blood pressure decreased [Not Recovered/Not Resolved]
  - Constipation [Unknown]
  - Headache [Not Recovered/Not Resolved]
  - Heart rate increased [Unknown]

NARRATIVE: CASE EVENT DATE: 201710
